FAERS Safety Report 14626853 (Version 3)
Quarter: 2018Q1

REPORT INFORMATION
  Report Type: Spontaneous
  Country: DE (occurrence: DE)
  Receive Date: 20180312
  Receipt Date: 20180321
  Transmission Date: 20180509
  Serious: Yes (Hospitalization, Other)
  Sender: FDA-Public Use
  Company Number: DE-SA-2018SA064999

PATIENT
  Sex: Female

DRUGS (3)
  1. LEMTRADA [Suspect]
     Active Substance: ALEMTUZUMAB
     Indication: MULTIPLE SCLEROSIS
     Route: 041
     Dates: start: 201505, end: 201505
  2. FINGOLIMOD. [Concomitant]
     Active Substance: FINGOLIMOD
     Indication: MULTIPLE SCLEROSIS
     Route: 065
  3. LEMTRADA [Suspect]
     Active Substance: ALEMTUZUMAB
     Indication: MULTIPLE SCLEROSIS
     Route: 041
     Dates: start: 201312, end: 201312

REACTIONS (5)
  - Hypothyroidism [Unknown]
  - Thrombocytopenia [Not Recovered/Not Resolved]
  - Mood swings [Unknown]
  - Multiple sclerosis relapse [Unknown]
  - Hyperthyroidism [Unknown]
